FAERS Safety Report 9292600 (Version 2)
Quarter: 2013Q4

REPORT INFORMATION
  Report Type: Spontaneous
  Country: JP (occurrence: JP)
  Receive Date: 20130516
  Receipt Date: 20131025
  Transmission Date: 20140711
  Serious: Yes (Death, Hospitalization, Other)
  Sender: FDA-Public Use
  Company Number: JP-ASTELLAS-2013US004955

PATIENT
  Age: 78 Year
  Sex: Female
  Weight: 40 kg

DRUGS (8)
  1. TARCEVA [Suspect]
     Indication: LUNG NEOPLASM MALIGNANT
     Dosage: 150 MG, UID/QD
     Route: 048
     Dates: start: 20120612, end: 20120809
  2. DEPAKENE /00228501/ [Suspect]
     Indication: PRODUCT USED FOR UNKNOWN INDICATION
     Dosage: 2 ML, UID/QD
     Route: 048
     Dates: start: 20120908, end: 20120914
  3. DEPAKENE /00228501/ [Suspect]
     Dosage: 2 ML, BID
     Route: 048
     Dates: start: 20120915, end: 20121030
  4. LEVETIRACETAM [Concomitant]
     Indication: PRODUCT USED FOR UNKNOWN INDICATION
     Dosage: UNK
     Route: 048
     Dates: start: 20120915, end: 20121030
  5. LEVETIRACETAM [Concomitant]
     Dosage: UNK
     Route: 048
     Dates: start: 20121031
  6. BLOPRESS [Concomitant]
     Indication: PRODUCT USED FOR UNKNOWN INDICATION
     Dosage: UNK
     Route: 048
     Dates: end: 20120809
  7. TOCOPHERYL NICOTINATE [Concomitant]
     Indication: PRODUCT USED FOR UNKNOWN INDICATION
     Dosage: UNK
     Route: 048
     Dates: start: 20120809
  8. GEFITINIB [Concomitant]
     Indication: PRODUCT USED FOR UNKNOWN INDICATION
     Dosage: UNK
     Route: 065

REACTIONS (9)
  - Hepatic function abnormal [Recovering/Resolving]
  - Hepatic function abnormal [Unknown]
  - Respiratory depression [Unknown]
  - Convulsion [Recovered/Resolved]
  - Convulsion [Unknown]
  - Fall [Unknown]
  - Ammonia increased [Recovered/Resolved]
  - Depressed level of consciousness [Unknown]
  - Malignant neoplasm progression [Fatal]
